FAERS Safety Report 7632777-6 (Version None)
Quarter: 2011Q3

REPORT INFORMATION
  Report Type: 
  Country: None (occurrence: None)
  Receive Date: 20110725
  Receipt Date: 20110110
  Transmission Date: 20111222
  Serious: No
  Sender: FDA-Public Use
  Company Number: US-BRISTOL-MYERS SQUIBB COMPANY-15478803

PATIENT
  Age: 45 Year
  Sex: Female

DRUGS (3)
  1. COUMADIN [Suspect]
  2. WARFARIN SODIUM [Suspect]
  3. LOVENOX [Suspect]
     Indication: THROMBOSIS
     Dosage: 1.5 WEEKS AGO
     Route: 065
     Dates: start: 20101101

REACTIONS (3)
  - INJECTION SITE HAEMATOMA [None]
  - INTERNATIONAL NORMALISED RATIO ABNORMAL [None]
  - INJECTION SITE PAIN [None]
